FAERS Safety Report 11636840 (Version 1)
Quarter: 2015Q4

REPORT INFORMATION
  Report Type: Spontaneous
  Country: US (occurrence: US)
  Receive Date: 20151016
  Receipt Date: 20151016
  Transmission Date: 20160304
  Serious: No
  Sender: FDA-Public Use
  Company Number: US-GALDERMA-US15005708

PATIENT
  Age: 50 Year
  Sex: Female

DRUGS (9)
  1. FINACEA [Concomitant]
     Active Substance: AZELAIC ACID
     Indication: SKIN HYPERPIGMENTATION
     Route: 061
     Dates: start: 201503
  2. ELTA MD SUNSCREEN [Concomitant]
     Indication: PROPHYLAXIS AGAINST SOLAR RADIATION
     Route: 061
  3. METROGEL [Suspect]
     Active Substance: METRONIDAZOLE
     Indication: ROSACEA
     Route: 061
     Dates: start: 20150616, end: 20150620
  4. SPIRONOLACTONE. [Concomitant]
     Active Substance: SPIRONOLACTONE
     Indication: SEBORRHOEA
     Dosage: 15 MG
     Route: 048
     Dates: start: 201503
  5. NATURE-THROID (DESICCATED DRIED THYROID) [Concomitant]
     Indication: HYPOTHYROIDISM
     Dosage: 37.5 MG
     Route: 048
  6. SOOLANTRA [Suspect]
     Active Substance: IVERMECTIN
     Indication: ROSACEA
     Route: 061
     Dates: start: 20150605
  7. UNKNOWN HORMONE REPLACEMENT THERAPY [Concomitant]
     Route: 048
  8. METROGEL [Suspect]
     Active Substance: METRONIDAZOLE
     Indication: ROSACEA
     Route: 061
     Dates: start: 201410, end: 201503
  9. OBAGI GENTLE CLEANSER [Concomitant]
     Indication: THERAPEUTIC SKIN CARE TOPICAL
     Route: 061
     Dates: start: 201506

REACTIONS (6)
  - Dermatitis [Unknown]
  - Skin exfoliation [Recovered/Resolved]
  - Dry skin [Recovered/Resolved]
  - Drug ineffective [Recovered/Resolved]
  - Pruritus [Recovered/Resolved]
  - Rosacea [Recovered/Resolved]

NARRATIVE: CASE EVENT DATE: 201503
